FAERS Safety Report 18186206 (Version 1)
Quarter: 2020Q3

REPORT INFORMATION
  Report Type: Spontaneous
  Country: US (occurrence: US)
  Receive Date: 20200823
  Receipt Date: 20200823
  Transmission Date: 20201103
  Serious: Yes (Disabling)
  Sender: FDA-Public Use
  Company Number: None

PATIENT
  Age: 28 Year
  Sex: Female
  Weight: 57.6 kg

DRUGS (3)
  1. GOOD NEIGHBOR PHARMACY ALL DAY ALLERGY [Suspect]
     Active Substance: CETIRIZINE HYDROCHLORIDE
     Indication: UPPER-AIRWAY COUGH SYNDROME
     Route: 048
     Dates: start: 20191218, end: 20200724
  2. MULTIVITAMIN [Concomitant]
     Active Substance: VITAMINS
  3. VITAMIN D [Concomitant]
     Active Substance: VITAMIN D NOS

REACTIONS (10)
  - Pain [None]
  - Burning sensation [None]
  - Withdrawal syndrome [None]
  - Gastroenteritis viral [None]
  - Joint swelling [None]
  - Pruritus [None]
  - Peripheral swelling [None]
  - Paraesthesia [None]
  - Erythema [None]
  - Dizziness [None]

NARRATIVE: CASE EVENT DATE: 20200726
